FAERS Safety Report 7122562-6 (Version None)
Quarter: 2010Q4

REPORT INFORMATION
  Report Type: 
  Country: None (occurrence: None)
  Receive Date: 20101112
  Receipt Date: 20101102
  Transmission Date: 20110411
  Serious: Yes (Hospitalization)
  Sender: FDA-Public Use
  Company Number: WAES 1009USA04338

PATIENT
  Age: 71 Year
  Sex: Female

DRUGS (2)
  1. FOSAMAX [Suspect]
     Indication: OSTEOPOROSIS
     Dosage: 35 MG/WKY
     Route: 048
     Dates: start: 20090609, end: 20100406
  2. CALCIUM CARBONATE [Suspect]
     Indication: OSTEOPOROSIS
     Dosage: 2 TAB/DAILY
     Route: 048
     Dates: start: 20090513, end: 20100411

REACTIONS (7)
  - ASTIGMATISM [None]
  - CATARACT [None]
  - HYPERMETROPIA [None]
  - PRESBYOPIA [None]
  - PROCEDURAL COMPLICATION [None]
  - RETINAL DETACHMENT [None]
  - VITREOUS FLOATERS [None]
